FAERS Safety Report 10067854 (Version 1)
Quarter: 2014Q2

REPORT INFORMATION
  Report Type: Spontaneous
  Country: US (occurrence: None)
  Receive Date: 20140407
  Receipt Date: 20140407
  Transmission Date: 20141212
  Serious: Yes (Hospitalization)
  Sender: FDA-Public Use
  Company Number: AUR-APL-2014-03950

PATIENT
  Age: 50 Year
  Sex: Male
  Weight: 88.3 kg

DRUGS (9)
  1. METFORMIN + GLIBENCLAMIDE [Suspect]
     Indication: TYPE 2 DIABETES MELLITUS
     Dosage: 1 D
     Route: 048
     Dates: start: 2006
  2. SIMVASTATIN (SIMVASTATIN) [Suspect]
     Indication: HYPERLIPIDAEMIA
     Dosage: 1 D
     Route: 048
  3. SERTRALINE (SERTRALINE) [Suspect]
     Indication: DEPRESSION
     Dosage: 1 D
     Route: 048
     Dates: start: 2007
  4. BUPRENORPHINE [Suspect]
     Indication: NECK PAIN
     Dosage: 4 MG, 1 IN 1 D
     Route: 048
     Dates: start: 2011
  5. COZAAR (LOSARTAN POTASSIUM) (50 MILLIGRAM, TABLETS) (LOSARTAN POTASSIUM) [Suspect]
     Indication: HYPERTENSION
     Dosage: 1 D
     Route: 048
     Dates: start: 1998
  6. FENOFIBRATE [Suspect]
     Indication: HYPERLIPIDAEMIA
  7. FISH OIL (FISH OIL) [Suspect]
     Indication: NUTRITIONAL SUPPLEMENTATION
     Dosage: 1 D
     Route: 048
     Dates: start: 2008
  8. MULTIVITAMINS (MULTIVITAMINS) [Suspect]
     Indication: NUTRITIONAL SUPPLEMENTATION
     Route: 048
     Dates: start: 2003
  9. TETANUS ANTI TOXIN (IMMUNOGLOBULIN ANTI-CLOSTRIDIUM TETANI TOXIN) [Suspect]
     Indication: PROPHYLAXIS
     Dosage: X1 INJECTION
     Dates: start: 20140203, end: 20140203

REACTIONS (1)
  - Hospitalisation [None]
